FAERS Safety Report 8560272-9 (Version None)
Quarter: 2012Q3

REPORT INFORMATION
  Report Type: 
  Country: None (occurrence: None)
  Receive Date: 20120802
  Receipt Date: 20120727
  Transmission Date: 20120928
  Serious: Yes (Other)
  Sender: FDA-Public Use
  Company Number: JP-009507513-1207JPN011088

PATIENT

DRUGS (10)
  1. PEG-INTRON [Suspect]
     Indication: HEPATITIS C
     Dosage: 1.41G/KG/WEEK
     Route: 058
     Dates: start: 20120510
  2. TELAVIC [Suspect]
     Indication: HEPATITIS C
     Route: 048
     Dates: start: 20120510
  3. ALEROFF [Concomitant]
     Indication: PROPHYLAXIS
     Route: 048
     Dates: start: 20120413, end: 20120510
  4. REBETOL [Suspect]
     Indication: HEPATITIS C
     Route: 048
     Dates: start: 20120510
  5. FENILENE [Concomitant]
     Indication: PROPHYLAXIS
     Route: 048
     Dates: start: 20120418, end: 20120401
  6. MYSER (DIFLUPREDNATE) [Concomitant]
     Indication: DRUG ERUPTION
     Route: 061
     Dates: start: 20120514
  7. EPINEPHRINE HYDROCHLORIDE [Concomitant]
     Indication: PROPHYLAXIS
     Route: 048
     Dates: start: 20120511
  8. URSO 250 [Concomitant]
     Indication: HEPATITIS C
     Route: 048
     Dates: end: 20120425
  9. SELTEPNON [Concomitant]
     Indication: PROPHYLAXIS
     Route: 048
     Dates: start: 20120418
  10. PREDNISOLONE [Concomitant]
     Indication: DRUG ERUPTION
     Route: 048
     Dates: start: 20120515, end: 20120523

REACTIONS (1)
  - RASH [None]
